FAERS Safety Report 5063471-6 (Version None)
Quarter: 2006Q3

REPORT INFORMATION
  Report Type: 
  Country: None (occurrence: None)
  Receive Date: 20060727
  Receipt Date: 20060711
  Transmission Date: 20061208
  Serious: Yes (Other)
  Sender: FDA-Public Use
  Company Number: CH-GLAXOSMITHKLINE-B0431394A

PATIENT
  Age: 53 Year
  Sex: Female
  Weight: 90 kg

DRUGS (5)
  1. AVANDAMET [Suspect]
     Indication: DIABETES MELLITUS NON-INSULIN-DEPENDENT
     Dosage: 1TAB PER DAY
     Route: 048
     Dates: start: 20060620, end: 20060701
  2. KLIOGEST [Concomitant]
     Indication: MENOPAUSAL SYMPTOMS
     Dosage: 1TAB PER DAY
     Route: 048
  3. ENALAPRIL MALEATE [Concomitant]
     Indication: HYPERTENSION
     Dosage: 20MG PER DAY
     Route: 048
  4. THIATRAL SR [Concomitant]
     Indication: PROPHYLAXIS
     Dosage: 100MG PER DAY
     Route: 048
  5. UNKNOWN [Concomitant]
     Indication: ARRHYTHMIA
     Route: 048

REACTIONS (2)
  - MENORRHAGIA [None]
  - POSTMENOPAUSAL HAEMORRHAGE [None]
